FAERS Safety Report 9655461 (Version 2)
Quarter: 2013Q4

REPORT INFORMATION
  Report Type: Spontaneous
  Country: US (occurrence: US)
  Receive Date: 20131029
  Receipt Date: 20131029
  Transmission Date: 20140711
  Serious: Yes (Other)
  Sender: FDA-Public Use
  Company Number: US-NAPPMUNDI-USA-2012-0087300

PATIENT
  Sex: Male

DRUGS (4)
  1. HYDROCODONE [Suspect]
     Indication: PRODUCT USED FOR UNKNOWN INDICATION
  2. HYDROMORPHONE HCL (SIMILAR TO 19-892) [Concomitant]
     Indication: BREAKTHROUGH PAIN
     Dosage: 4 MG, SEE TEXT
     Route: 048
  3. OXYCODONE HCL IMMEDIATE RELEASE (91-490) [Concomitant]
     Indication: BREAKTHROUGH PAIN
     Dosage: 5 MG, Q6H PRN
     Route: 048
  4. OXYCONTIN (NDA 22-272) [Suspect]
     Indication: PAIN
     Dosage: 80 MG, Q12H
     Route: 048
     Dates: start: 201008

REACTIONS (1)
  - Drug abuse [Not Recovered/Not Resolved]
